FAERS Safety Report 25728239 (Version 1)
Quarter: 2025Q3

REPORT INFORMATION
  Report Type: Spontaneous
  Country: US (occurrence: None)
  Receive Date: 20250826
  Receipt Date: 20250826
  Transmission Date: 20251021
  Serious: Yes (Other)
  Sender: FDA-CTU
  Company Number: None

PATIENT
  Age: 32 Year
  Sex: Female
  Weight: 68.85 kg

DRUGS (1)
  1. ZURZUVAE [Suspect]
     Active Substance: ZURANOLONE
     Indication: Perinatal depression
     Dosage: FREQUENCY : DAILY;?
     Route: 048
     Dates: start: 20250814, end: 20250825

REACTIONS (3)
  - Insomnia [None]
  - Brief psychotic disorder, with postpartum onset [None]
  - Derealisation [None]

NARRATIVE: CASE EVENT DATE: 20250825
